FAERS Safety Report 8194148-6 (Version None)
Quarter: 2012Q1

REPORT INFORMATION
  Report Type: 
  Country: None (occurrence: None)
  Receive Date: 20120308
  Receipt Date: 20120301
  Transmission Date: 20120608
  Serious: Yes (Life-Threatening, Hospitalization)
  Sender: FDA-Public Use
  Company Number: IN-SANOFI-AVENTIS-2012SA014269

PATIENT
  Age: 35 Year
  Sex: Male
  Weight: 75 kg

DRUGS (3)
  1. FLUOROURACIL [Suspect]
     Route: 042
     Dates: start: 20120216, end: 20120218
  2. CISPLATIN [Suspect]
     Route: 042
     Dates: start: 20120216, end: 20120218
  3. TAXOTERE [Suspect]
     Route: 042
     Dates: start: 20120216, end: 20120216

REACTIONS (1)
  - MOUTH HAEMORRHAGE [None]
